FAERS Safety Report 7603459-1 (Version None)
Quarter: 2011Q3

REPORT INFORMATION
  Report Type: 
  Country: None (occurrence: None)
  Receive Date: 20110712
  Receipt Date: 20110706
  Transmission Date: 20111222
  Serious: Yes (Other)
  Sender: FDA-Public Use
  Company Number: JP-PFIZER INC-2011151736

PATIENT
  Age: 56 Year
  Sex: Female

DRUGS (3)
  1. RHEUMATREX [Suspect]
     Indication: RHEUMATOID ARTHRITIS
  2. VANCOMYCIN [Concomitant]
  3. ZYVOX [Suspect]
     Indication: ARTHRITIS

REACTIONS (2)
  - PANCYTOPENIA [None]
  - HISTIOCYTOSIS HAEMATOPHAGIC [None]
